FAERS Safety Report 7457261-4 (Version None)
Quarter: 2011Q2

REPORT INFORMATION
  Report Type: 
  Country: None (occurrence: None)
  Receive Date: 20110504
  Receipt Date: 20110426
  Transmission Date: 20111010
  Serious: Yes (Hospitalization)
  Sender: FDA-Public Use
  Company Number: US-US-EMD SERONO, INC.-7055192

PATIENT
  Sex: Female
  Weight: 127 kg

DRUGS (4)
  1. COPAXONE [Suspect]
     Indication: MULTIPLE SCLEROSIS
     Dates: start: 20051001
  2. REBIF [Suspect]
     Indication: MULTIPLE SCLEROSIS
     Route: 058
     Dates: start: 20070508, end: 20090324
  3. REBIF [Suspect]
     Dates: start: 20110401
  4. REBIF [Suspect]
     Dates: start: 20110301, end: 20110401

REACTIONS (1)
  - BREAST CANCER STAGE III [None]
